FAERS Safety Report 17645915 (Version 1)
Quarter: 2020Q2

REPORT INFORMATION
  Report Type: Spontaneous
  Country: US (occurrence: US)
  Receive Date: 20200408
  Receipt Date: 20200408
  Transmission Date: 20200713
  Serious: Yes (Death)
  Sender: FDA-Public Use
  Company Number: US-ROCHE-2577023

PATIENT
  Age: 91 Year
  Sex: Male

DRUGS (1)
  1. XOLAIR [Suspect]
     Active Substance: OMALIZUMAB
     Indication: ASTHMA
     Dosage: ONGOING; YES
     Route: 058
     Dates: start: 20190607

REACTIONS (1)
  - Death [Fatal]

NARRATIVE: CASE EVENT DATE: 20200325
